FAERS Safety Report 16820324 (Version 1)
Quarter: 2019Q3

REPORT INFORMATION
  Report Type: Report from Study
  Country: CO (occurrence: CO)
  Receive Date: 20190918
  Receipt Date: 20190918
  Transmission Date: 20191005
  Serious: Yes (Other)
  Sender: FDA-Public Use
  Company Number: CO-ROCHE-2406128

PATIENT
  Sex: Male
  Weight: 42 kg

DRUGS (7)
  1. AMIODARONE [Concomitant]
     Active Substance: AMIODARONE
  2. ACETYLSALICYLIC ACID [Concomitant]
     Active Substance: ASPIRIN
  3. ROSUVASTATIN. [Concomitant]
     Active Substance: ROSUVASTATIN
  4. EZETIMIBE. [Concomitant]
     Active Substance: EZETIMIBE
  5. HALOPERIDOL. [Concomitant]
     Active Substance: HALOPERIDOL
  6. GAZYVA [Suspect]
     Active Substance: OBINUTUZUMAB
     Indication: CHRONIC LYMPHOCYTIC LEUKAEMIA
     Route: 042
     Dates: start: 201901
  7. VASTAREL [Concomitant]
     Active Substance: TRIMETAZIDINE DIHYDROCHLORIDE

REACTIONS (4)
  - Colitis [Recovering/Resolving]
  - Large intestine infection [Recovering/Resolving]
  - Constipation [Recovering/Resolving]
  - Pneumonia [Not Recovered/Not Resolved]
